FAERS Safety Report 5109608-1 (Version None)
Quarter: 2006Q3

REPORT INFORMATION
  Report Type: 
  Country: None (occurrence: None)
  Receive Date: 20060731
  Receipt Date: 20060523
  Transmission Date: 20061208
  Serious: No
  Sender: FDA-Public Use
  Company Number: 2006PV014381

PATIENT
  Age: 60 Year
  Sex: Female
  Weight: 84.8226 kg

DRUGS (3)
  1. BYETTA [Suspect]
     Indication: DIABETES MELLITUS NON-INSULIN-DEPENDENT
     Dosage: 5 MCG;BID;SC
     Route: 058
     Dates: start: 20060503, end: 20060520
  2. LANTUS [Concomitant]
  3. ACTOS [Concomitant]

REACTIONS (9)
  - BLOOD GLUCOSE DECREASED [None]
  - CONDITION AGGRAVATED [None]
  - DECREASED APPETITE [None]
  - HYPERTENSION [None]
  - HYPOAESTHESIA [None]
  - NERVE COMPRESSION [None]
  - PRURITUS GENERALISED [None]
  - URTICARIA [None]
  - WEIGHT DECREASED [None]
